FAERS Safety Report 9621573 (Version 2)
Quarter: 2013Q4

REPORT INFORMATION
  Report Type: Spontaneous
  Country: US (occurrence: US)
  Receive Date: 20131015
  Receipt Date: 20131113
  Transmission Date: 20140711
  Serious: No
  Sender: FDA-Public Use
  Company Number: US-PFIZER INC-2013294131

PATIENT
  Age: 48 Year
  Sex: Female

DRUGS (5)
  1. CELEBREX [Suspect]
     Dosage: UNK
  2. IBUPROFEN [Suspect]
     Dosage: UNK
  3. NAPROXEN SODIUM [Suspect]
     Dosage: UNK
  4. CARISOPRODOL [Suspect]
     Dosage: UNK
  5. TYLENOL [Suspect]
     Dosage: UNK

REACTIONS (1)
  - Drug ineffective [Unknown]
